FAERS Safety Report 4457612-9 (Version None)
Quarter: 2004Q3

REPORT INFORMATION
  Report Type: 
  Country: None (occurrence: None)
  Receive Date: 20040922
  Receipt Date: 20040910
  Transmission Date: 20050211
  Serious: Yes (Hospitalization)
  Sender: FDA-Public Use
  Company Number: 2004233365FR

PATIENT
  Age: 71 Year
  Weight: 74 kg

DRUGS (2)
  1. SOLU-MEDROL [Suspect]
     Dosage: 120 MG SINGLE, IV
     Route: 042
     Dates: start: 20040622, end: 20040622
  2. ELOXATIN [Suspect]
     Dosage: 160 MG, SINGLE, IV
     Route: 042
     Dates: start: 20040622, end: 20040622

REACTIONS (3)
  - ERYTHEMA [None]
  - OEDEMA PERIPHERAL [None]
  - PRURITUS [None]
